FAERS Safety Report 4474760-8 (Version None)
Quarter: 2004Q4

REPORT INFORMATION
  Report Type: 
  Country: None (occurrence: None)
  Receive Date: 20041012
  Receipt Date: 20040923
  Transmission Date: 20050328
  Serious: Yes (Other)
  Sender: FDA-Public Use
  Company Number: L04-AUS-05866-01

PATIENT

DRUGS (3)
  1. CITALOPRAM [Suspect]
  2. TRAMADOL HCL [Suspect]
     Indication: FRACTURE
  3. TRAMADOL HCL [Suspect]
     Indication: PAIN

REACTIONS (2)
  - DRUG INTERACTION [None]
  - HYPONATRAEMIA [None]
